FAERS Safety Report 19642475 (Version 30)
Quarter: 2025Q1

REPORT INFORMATION
  Report Type: Spontaneous
  Country: IN (occurrence: IN)
  Receive Date: 20210730
  Receipt Date: 20250212
  Transmission Date: 20250409
  Serious: Yes (Other)
  Sender: PFIZER
  Company Number: IN-PFIZER INC-2021068623

PATIENT
  Age: 52 Year
  Sex: Female

DRUGS (36)
  1. PALBOCICLIB [Suspect]
     Active Substance: PALBOCICLIB
     Indication: Breast cancer metastatic
     Dosage: 125 MG, 1X/DAY
     Route: 048
     Dates: start: 20200520
  2. PALBOCICLIB [Suspect]
     Active Substance: PALBOCICLIB
     Dates: start: 202106
  3. PALBOCICLIB [Suspect]
     Active Substance: PALBOCICLIB
     Dosage: 125 MG, 1X/DAY
     Route: 048
     Dates: start: 20210703
  4. PALBOCICLIB [Suspect]
     Active Substance: PALBOCICLIB
     Dosage: 125 MG, 1X/DAY
     Route: 048
     Dates: start: 20210717
  5. PALBOCICLIB [Suspect]
     Active Substance: PALBOCICLIB
     Dates: start: 20220718
  6. PALBOCICLIB [Suspect]
     Active Substance: PALBOCICLIB
     Route: 048
     Dates: start: 20230410
  7. PALBOCICLIB [Suspect]
     Active Substance: PALBOCICLIB
     Route: 048
     Dates: start: 20231021
  8. PALBOCICLIB [Suspect]
     Active Substance: PALBOCICLIB
     Route: 048
     Dates: start: 20231219
  9. PALBOCICLIB [Suspect]
     Active Substance: PALBOCICLIB
     Dosage: 125 MG, 1X/DAY
     Route: 048
  10. PALBOCICLIB [Suspect]
     Active Substance: PALBOCICLIB
     Dosage: 125 MG, 1X/DAY
     Route: 048
  11. PALBOCICLIB [Suspect]
     Active Substance: PALBOCICLIB
     Dosage: 125 MG, 1X/DAY
     Route: 048
  12. LETROZOLE [Concomitant]
     Active Substance: LETROZOLE
     Dosage: ONCE IN A DAY, WITH OR WITHOUT FOOD, ORAL 60 DAYS
     Route: 048
  13. LETROZOLE [Concomitant]
     Active Substance: LETROZOLE
     Dates: start: 202106
  14. CCM [Concomitant]
  15. IDROFOS [Concomitant]
     Dosage: 1 DF, MONTHLY
  16. CALCIUM CARBONATE\CHOLECALCIFEROL [Concomitant]
     Active Substance: CALCIUM CARBONATE\CHOLECALCIFEROL
     Dosage: UNK UNK, 1X/DAY
     Route: 048
  17. NEUKINE [Concomitant]
  18. MINERALS\VITAMINS [Concomitant]
     Active Substance: MINERALS\VITAMINS
  19. MEGASTY [Concomitant]
  20. BUPATCH [Concomitant]
  21. LYRICA [Concomitant]
     Active Substance: PREGABALIN
  22. ULTRANURON PLUS [Concomitant]
     Dosage: UNK, 1X/DAY (ONCE IN A DAY)
     Route: 048
  23. ULTRANURON PLUS [Concomitant]
     Dosage: UNK, 2X/DAY (TWICE IN A DAY)
     Route: 048
  24. OROFER XT [Concomitant]
     Dosage: UNK, 2X/DAY (TWICE IN A DAY), AFTER FOOD
     Route: 048
  25. OROFER XT [Concomitant]
     Dosage: UNK, 1X/DAY (ONCE IN A DAY), AFTER FOOD
     Route: 048
  26. ZOLPIDEM TARTRATE [Concomitant]
     Active Substance: ZOLPIDEM TARTRATE
     Route: 048
  27. DOLO 650 [Concomitant]
     Route: 048
  28. XGEVA [Concomitant]
     Active Substance: DENOSUMAB
     Dosage: UNK, MONTHLY (ONCE A MONTH), WITHHOLD XGEVA
     Route: 058
  29. LIPI EZ [Concomitant]
     Dosage: UNK, 1X/DAY (ONCE IN A NIGHT)
     Route: 048
  30. TAYO [COLECALCIFEROL] [Concomitant]
     Dosage: UNK, MONTHLY (ONCE A MONTH)
     Route: 048
  31. DUBINOR [Concomitant]
     Dosage: UNK, 2X/DAY (TWICE A DAY)
     Route: 048
  32. FEBUXOSTAT [Concomitant]
     Active Substance: FEBUXOSTAT
     Dosage: UNK, 1X/DAY (ONCE IN A DAY)
     Route: 048
  33. TENIVA [Concomitant]
     Dosage: 1 DF, 1X/DAY
  34. GLICLAZIDE [Concomitant]
     Active Substance: GLICLAZIDE
     Dosage: 1 DF, 1X/DAY
  35. ZORYL M [Concomitant]
     Dosage: UNK, 1X/DAY (IN THE NOON)
  36. PIOGLITAZONE HYDROCHLORIDE [Concomitant]
     Active Substance: PIOGLITAZONE HYDROCHLORIDE
     Dosage: 1 DF, 1X/DAY

REACTIONS (37)
  - Renal impairment [Unknown]
  - Neuropathy peripheral [Unknown]
  - Diabetes mellitus inadequate control [Unknown]
  - Osteomyelitis bacterial [Unknown]
  - Jaw fracture [Unknown]
  - Haemoglobin decreased [Unknown]
  - Urosepsis [Unknown]
  - Impaired healing [Unknown]
  - Escherichia test positive [Unknown]
  - Arthralgia [Unknown]
  - Blood cholesterol increased [Unknown]
  - Pain [Unknown]
  - Decreased appetite [Unknown]
  - Blood triglycerides increased [Recovering/Resolving]
  - Glucose urine [Recovered/Resolved]
  - C-reactive protein increased [Unknown]
  - Pain in extremity [Unknown]
  - Blood iron decreased [Unknown]
  - Blood creatinine increased [Unknown]
  - Blood cholesterol decreased [Unknown]
  - Glycosylated haemoglobin increased [Recovering/Resolving]
  - White blood cell count decreased [Unknown]
  - Blood glucose increased [Recovering/Resolving]
  - Blood glucose abnormal [Unknown]
  - Nodule [Unknown]
  - Thyroglobulin increased [Unknown]
  - Blood uric acid increased [Recovering/Resolving]
  - White blood cells urine positive [Recovering/Resolving]
  - Asthenia [Unknown]
  - COVID-19 [Recovered/Resolved]
  - Neutrophil count decreased [Unknown]
  - Osteosclerosis [Unknown]
  - Blood thyroid stimulating hormone increased [Not Recovered/Not Resolved]
  - Nitrite urine present [Unknown]
  - Bacterial test positive [Unknown]
  - Constipation [Unknown]
  - Red blood cell sedimentation rate increased [Recovering/Resolving]

NARRATIVE: CASE EVENT DATE: 20211017
